FAERS Safety Report 6092153-7 (Version None)
Quarter: 2009Q1

REPORT INFORMATION
  Report Type: 
  Country: None (occurrence: None)
  Receive Date: 20090225
  Receipt Date: 20090218
  Transmission Date: 20090719
  Serious: Yes (Other)
  Sender: FDA-Public Use
  Company Number: US-WYE-H08303109

PATIENT
  Age: 12 Year
  Sex: Male
  Weight: 40.86 kg

DRUGS (1)
  1. ROBITUSSIN CHILDREN'S COUGH LONG ACTING [Suspect]
     Dosage: UNKNOWN
     Route: 048

REACTIONS (2)
  - DRUG ABUSE [None]
  - INTENTIONAL OVERDOSE [None]
